FAERS Safety Report 4514579-2 (Version None)
Quarter: 2004Q4

REPORT INFORMATION
  Report Type: 
  Country: None (occurrence: None)
  Receive Date: 20040928
  Receipt Date: 20040730
  Transmission Date: 20050328
  Serious: No
  Sender: FDA-Public Use
  Company Number: SP00319

PATIENT
  Age: 51 Year
  Sex: Male
  Weight: 86.1834 kg

DRUGS (11)
  1. XIFAXAN [Suspect]
     Indication: CROHN'S DISEASE
     Dosage: 200 MG TID, ORAL
     Route: 048
     Dates: start: 20040724, end: 20040725
  2. ENTOCORT [Concomitant]
  3. PREVACID [Concomitant]
  4. PREDNISONE [Concomitant]
  5. KLONOPIN [Concomitant]
  6. COREG [Concomitant]
  7. ALTACE [Concomitant]
  8. ACTANOL [Concomitant]
  9. CENTRUM VITAMINS [Concomitant]
  10. VITAMIN B-12 [Concomitant]
  11. OMEGA 3 [Concomitant]

REACTIONS (4)
  - ABDOMINAL DISTENSION [None]
  - ABDOMINAL PAIN [None]
  - DIARRHOEA [None]
  - MUSCLE CRAMP [None]
